FAERS Safety Report 22398077 (Version 2)
Quarter: 2023Q2

REPORT INFORMATION
  Report Type: Other
  Country: IT (occurrence: IT)
  Receive Date: 20230602
  Receipt Date: 20230609
  Transmission Date: 20230721
  Serious: Yes (Other)
  Sender: FDA-Public Use
  Company Number: IT-ALVOGEN-2023091590

PATIENT
  Age: 60 Year
  Sex: Female

DRUGS (6)
  1. DEXAMETHASONE [Suspect]
     Active Substance: DEXAMETHASONE
     Indication: Plasma cell myeloma
     Dosage: FOR 18 MONTHS
     Dates: start: 201605, end: 201801
  2. LENALIDOMIDE [Suspect]
     Active Substance: LENALIDOMIDE
     Indication: Plasma cell myeloma
     Dosage: LENALIDOMIDE ALONE AS MAINTENANCE THERAPY FOR ALMOST TWO YEARS.
  3. LENALIDOMIDE [Suspect]
     Active Substance: LENALIDOMIDE
     Indication: Plasma cell myeloma
     Dosage: (THALIDOMIDE ANALOG)  FOR 18 MONTHS IN COMBINATION WITH OTHER DRUGS.
     Dates: start: 201605, end: 201801
  4. LENALIDOMIDE [Suspect]
     Active Substance: LENALIDOMIDE
     Indication: Plasma cell myeloma
     Dosage: LENALIDOMIDE ALONE AS MAINTENANCE THERAPY FOR ALMOST TWO YEARS.
     Dates: start: 202010
  5. ZOLEDRONIC ACID [Suspect]
     Active Substance: ZOLEDRONIC ACID
     Indication: Plasma cell myeloma
     Dosage: FOR 18 MONTHS
     Dates: start: 201605, end: 201801
  6. BORTEZOMIB [Suspect]
     Active Substance: BORTEZOMIB
     Indication: Plasma cell myeloma
     Dosage: FOR 18 MONTHS
     Dates: start: 201605, end: 201801

REACTIONS (2)
  - Osteonecrosis of jaw [Recovering/Resolving]
  - Off label use [Unknown]
